FAERS Safety Report 10625405 (Version 1)
Quarter: 2014Q4

REPORT INFORMATION
  Report Type: Spontaneous
  Country: GB (occurrence: None)
  Receive Date: 20141201
  Receipt Date: 20141201
  Transmission Date: 20150529
  Serious: Yes (Disabling, Other)
  Sender: FDA-Public Use
  Company Number: GB-ALKEM-000769

PATIENT
  Age: 57 Year
  Sex: Female

DRUGS (7)
  1. QUETIAPINE (QUETIAPINE) [Suspect]
     Active Substance: QUETIAPINE
     Indication: SLEEP DISORDER
     Dosage: 300MG TIMES PER DAY 1.DAY
     Route: 048
     Dates: start: 201208, end: 201401
  2. BUSCOPAN [Concomitant]
     Active Substance: BUTYLSCOPOLAMINE BROMIDE
  3. CO-DYDRAMOL [Concomitant]
     Active Substance: ACETAMINOPHEN\DIHYDROCODEINE
  4. OMEPRAZOLE. [Concomitant]
     Active Substance: OMEPRAZOLE
  5. IBUPROFEN. [Concomitant]
     Active Substance: IBUPROFEN
  6. TRAMADOL [Concomitant]
     Active Substance: TRAMADOL
  7. CARAMAZEPINE [Concomitant]

REACTIONS (12)
  - Joint swelling [None]
  - Nightmare [None]
  - Impaired work ability [None]
  - Lymphoedema [None]
  - Local swelling [None]
  - Quality of life decreased [None]
  - Arthralgia [None]
  - Skin infection [None]
  - Peripheral swelling [None]
  - Pain [None]
  - Anxiety [None]
  - Off label use [None]
